FAERS Safety Report 12934005 (Version 1)
Quarter: 2016Q4

REPORT INFORMATION
  Report Type: Spontaneous
  Country: AU (occurrence: AU)
  Receive Date: 20161111
  Receipt Date: 20161111
  Transmission Date: 20170207
  Serious: Yes (Other)
  Sender: FDA-Public Use
  Company Number: AU-BRACCO-001255

PATIENT
  Age: 67 Year
  Sex: Male

DRUGS (1)
  1. ISOVUE [Suspect]
     Active Substance: IOPAMIDOL
     Indication: UROGRAM
     Route: 042

REACTIONS (2)
  - Extravasation [Recovered/Resolved]
  - Ureteric rupture [Recovered/Resolved]
